FAERS Safety Report 16281646 (Version 2)
Quarter: 2019Q2

REPORT INFORMATION
  Report Type: Spontaneous
  Country: US (occurrence: US)
  Receive Date: 20190507
  Receipt Date: 20190624
  Transmission Date: 20190711
  Serious: No
  Sender: FDA-Public Use
  Company Number: US-PFIZER INC-2019192942

PATIENT
  Age: 40 Year
  Sex: Female
  Weight: 58.5 kg

DRUGS (3)
  1. ZOCOR [Suspect]
     Active Substance: SIMVASTATIN
     Dosage: UNK
  2. LIPITOR [Suspect]
     Active Substance: ATORVASTATIN CALCIUM
     Dosage: UNK
  3. VISTA [Suspect]
     Active Substance: OFLOXACIN
     Dosage: UNK

REACTIONS (3)
  - Rash [Unknown]
  - Bone pain [Unknown]
  - Blood cholesterol increased [Unknown]
